FAERS Safety Report 12308267 (Version 1)
Quarter: 2016Q2

REPORT INFORMATION
  Report Type: Report from Study
  Country: BR (occurrence: BR)
  Receive Date: 20160426
  Receipt Date: 20160426
  Transmission Date: 20160815
  Serious: Yes (Hospitalization, Other)
  Sender: FDA-Public Use
  Company Number: BR-ABBVIE-16K-020-1611218-00

PATIENT
  Age: 34 Year
  Sex: Female
  Weight: 47 kg

DRUGS (4)
  1. HUMIRA [Suspect]
     Active Substance: ADALIMUMAB
     Indication: CROHN^S DISEASE
     Dosage: LOADING DOSE, WEEK ZERO
     Route: 058
     Dates: start: 20150301, end: 20150301
  2. PURAN [Concomitant]
     Active Substance: LEVOTHYROXINE SODIUM
     Indication: HYPOTHYROIDISM
     Route: 048
     Dates: start: 2011
  3. HUMIRA [Suspect]
     Active Substance: ADALIMUMAB
     Dosage: LOADING DOSE, WEEK TWO
     Route: 058
     Dates: start: 201503, end: 201503
  4. HUMIRA [Suspect]
     Active Substance: ADALIMUMAB
     Route: 058
     Dates: end: 20160317

REACTIONS (6)
  - Immunodeficiency [Unknown]
  - Pain [Unknown]
  - Tonsillar disorder [Recovered/Resolved]
  - Pharyngitis [Recovering/Resolving]
  - Pneumonia [Not Recovered/Not Resolved]
  - Chills [Recovering/Resolving]

NARRATIVE: CASE EVENT DATE: 20160331
